FAERS Safety Report 9404742 (Version 2)
Quarter: 2013Q3

REPORT INFORMATION
  Report Type: Report from Study
  Country: BR (occurrence: BR)
  Receive Date: 20130717
  Receipt Date: 20130925
  Transmission Date: 20140515
  Serious: Yes (Hospitalization, Other)
  Sender: FDA-Public Use
  Company Number: PHHY2013BR075406

PATIENT
  Age: 85 Year
  Sex: Male

DRUGS (6)
  1. FORASEQ [Suspect]
     Indication: PNEUMONIA
     Dosage: 12/400 MCG
  2. FORASEQ [Suspect]
     Indication: OFF LABEL USE
     Dosage: 1 DF, BID (12/400 UG, BID) (12 TO 12 HR)
     Dates: start: 20130606
  3. FORASEQ [Suspect]
     Indication: EMPHYSEMA
  4. ENALAPRIL [Concomitant]
     Indication: HYPERTENSION
     Dosage: 2 DF, (1 IN THE MORNING AND 1 AT NIGHT)
     Route: 048
  5. HYDROCHLOROTHIAZIDE [Concomitant]
     Dosage: 1 DF, QD
     Route: 048
  6. OMEPRAZOLE [Concomitant]
     Indication: GASTRIC DISORDER
     Dosage: 1 DF, QD
     Route: 048
     Dates: start: 201205

REACTIONS (16)
  - Fall [Recovered/Resolved]
  - Clavicle fracture [Recovered/Resolved]
  - Pneumonia bacterial [Recovered/Resolved]
  - Emphysema [Not Recovered/Not Resolved]
  - Cerebrovascular accident [Recovered/Resolved]
  - Labyrinthitis [Recovered/Resolved]
  - Cerebral ischaemia [Not Recovered/Not Resolved]
  - Diabetes mellitus [Recovering/Resolving]
  - Lip disorder [Recovered/Resolved]
  - Hypertension [Recovered/Resolved]
  - Dizziness [Recovered/Resolved]
  - Bronchial disorder [Unknown]
  - Vomiting [Recovering/Resolving]
  - Skin irritation [Not Recovered/Not Resolved]
  - Headache [Not Recovered/Not Resolved]
  - Insomnia [Recovering/Resolving]
